FAERS Safety Report 7931142-1 (Version None)
Quarter: 2011Q4

REPORT INFORMATION
  Report Type: 
  Country: None (occurrence: None)
  Receive Date: 20111121
  Receipt Date: 20111109
  Transmission Date: 20120403
  Serious: Yes (Death, Hospitalization)
  Sender: FDA-Public Use
  Company Number: TW-MERCK-1111USA01093

PATIENT
  Age: 79 Year
  Sex: Male
  Weight: 53 kg

DRUGS (1)
  1. FOSAMAX PLUS D [Suspect]
     Indication: OSTEOPOROSIS
     Route: 048
     Dates: start: 20110721, end: 20110801

REACTIONS (2)
  - RECTAL CANCER STAGE IV [None]
  - DEATH [None]
